FAERS Safety Report 9536093 (Version 1)
Quarter: 2013Q2

REPORT INFORMATION
  Report Type: Spontaneous
  Country: US (occurrence: None)
  Receive Date: 20130507
  Receipt Date: 20130507
  Transmission Date: 20140414
  Serious: No
  Sender: FDA-Public Use
  Company Number: PHEH2013US000448

PATIENT
  Age: 69 Year
  Sex: Female

DRUGS (3)
  1. AFINITOR (RAD) UNKNOWN [Suspect]
     Dates: start: 20121112, end: 20121211
  2. ZOMETA (ZOLEDRONIC ACID) [Concomitant]
  3. DOXYCYCLINE (DOXYCYCLINE) [Concomitant]

REACTIONS (6)
  - Urticaria [None]
  - Stomatitis [None]
  - Burning sensation [None]
  - Inflammatory bowel disease [None]
  - Skin exfoliation [None]
  - Pruritus [None]
